FAERS Safety Report 9867222 (Version 1)
Quarter: 2014Q1

REPORT INFORMATION
  Report Type: Spontaneous
  Country: US (occurrence: None)
  Receive Date: 20140131
  Receipt Date: 20140131
  Transmission Date: 20141002
  Serious: Yes (Death)
  Sender: FDA-Public Use
  Company Number: 2014AP000704

PATIENT
  Age: 47 Year
  Sex: Female

DRUGS (7)
  1. QUETIAPINE FUMARATE [Suspect]
  2. DILTIAZEM [Suspect]
  3. HEROIN [Suspect]
  4. DEXTROMETHORPHAN [Suspect]
  5. ALPRAZOLAM [Suspect]
  6. QUININE [Suspect]
  7. CODEINE [Suspect]

REACTIONS (1)
  - Drug abuse [None]
